FAERS Safety Report 9382170 (Version 1)
Quarter: 2013Q3

REPORT INFORMATION
  Report Type: Spontaneous
  Country: US (occurrence: US)
  Receive Date: 20130703
  Receipt Date: 20130703
  Transmission Date: 20140515
  Serious: Yes (Hospitalization)
  Sender: FDA-Public Use
  Company Number: US-AMGEN-USASP2013046349

PATIENT
  Age: 41 Year
  Sex: Female
  Weight: 61.22 kg

DRUGS (7)
  1. ENBREL [Suspect]
     Indication: PRODUCT USED FOR UNKNOWN INDICATION
     Dosage: 50 MG, QWK
     Route: 058
  2. SERTRALINE [Concomitant]
     Dosage: 100 MG, UNK
  3. NAPROXEN [Concomitant]
     Dosage: 375 MG, UNK
  4. OMEPRAZOLE [Concomitant]
     Dosage: 40 MG, UNK
  5. LEVOTHYROXIN [Concomitant]
     Dosage: 88 MU, UNK
  6. SULFASALAZIN [Concomitant]
     Dosage: 500 MG, UNK
  7. HYDROCODONE/APAP [Concomitant]
     Dosage: 5-300 MG, UNK

REACTIONS (2)
  - Multi-organ disorder [Recovered/Resolved]
  - Sepsis [Recovered/Resolved]
